FAERS Safety Report 24584879 (Version 2)
Quarter: 2024Q4

REPORT INFORMATION
  Report Type: Spontaneous
  Country: GB (occurrence: GB)
  Receive Date: 20241106
  Receipt Date: 20241226
  Transmission Date: 20250115
  Serious: Yes (Disabling)
  Sender: ESPERION THERAPEUTICS
  Company Number: GB-MHRA-TPP33357871C10186187YC1730111940657

PATIENT

DRUGS (10)
  1. BEMPEDOIC ACID [Suspect]
     Active Substance: BEMPEDOIC ACID
     Indication: Ill-defined disorder
     Dosage: 180 MG, QD
     Route: 065
     Dates: start: 20241028
  2. ASPIRIN [Concomitant]
     Active Substance: ASPIRIN
     Indication: Ill-defined disorder
     Dosage: 1 DOSAGE FORM, QD
     Route: 065
     Dates: start: 19960920
  3. PERINDOPRIL ERBUMINE [Concomitant]
     Active Substance: PERINDOPRIL ERBUMINE
     Indication: Ill-defined disorder
     Dosage: 1 DOSAGE FORM, ONE TO BE TAKEN AT NIGHT
     Route: 065
     Dates: start: 20030808
  4. ACETAMINOPHEN [Concomitant]
     Active Substance: ACETAMINOPHEN
     Indication: Ill-defined disorder
     Dosage: 2 DOSAGE FORM, QID (TWO TO BE TAKEN FOUR TIMES A DAY AS REQUIRED)
     Route: 065
     Dates: start: 20080716
  5. EPLERENONE [Concomitant]
     Active Substance: EPLERENONE
     Indication: Ill-defined disorder
     Dosage: 1 DOSAGE FORM, QD (ONE TO BE TAKEN EACH DAY)
     Route: 065
     Dates: start: 20181130
  6. TAMSULOSIN HYDROCHLORIDE [Concomitant]
     Active Substance: TAMSULOSIN HYDROCHLORIDE
     Indication: Ill-defined disorder
     Dosage: 1 DOSAGE FORM, QD (ONE TO BE TAKEN EACH DAY)
     Route: 065
     Dates: start: 20191213
  7. BISOPROLOL [Concomitant]
     Active Substance: BISOPROLOL
     Indication: Ill-defined disorder
     Dosage: 1 DOSAGE FORM, QD (ONE TO BE TAKEN EACH DAY)
     Route: 065
     Dates: start: 20210504
  8. NITROGLYCERIN [Concomitant]
     Active Substance: NITROGLYCERIN
     Indication: Ill-defined disorder
     Dosage: SPRAY ONE OR TWO DOSES UNDER TONGUE AND THEN CL.
     Route: 065
     Dates: start: 20231026
  9. EZETIMIBE [Concomitant]
     Active Substance: EZETIMIBE
     Indication: Ill-defined disorder
     Dosage: 1 DOSAGE FORM, QD
     Route: 065
     Dates: start: 20240305
  10. BEMPEDOIC ACID [Concomitant]
     Active Substance: BEMPEDOIC ACID
     Indication: Ill-defined disorder
     Dosage: 1 DOSAGE FORM, QD
     Route: 065
     Dates: start: 20240607

REACTIONS (1)
  - Pain in extremity [Recovering/Resolving]

NARRATIVE: CASE EVENT DATE: 20241028
